FAERS Safety Report 14305734 (Version 1)
Quarter: 2017Q4

REPORT INFORMATION
  Report Type: Spontaneous
  Country: GB (occurrence: GB)
  Receive Date: 20171219
  Receipt Date: 20171219
  Transmission Date: 20180321
  Serious: Yes (Hospitalization)
  Sender: FDA-Public Use
  Company Number: PHHY2017GB187303

PATIENT
  Age: 82 Year
  Sex: Female

DRUGS (42)
  1. DEXAMETHASONE. [Suspect]
     Active Substance: DEXAMETHASONE
     Dosage: 12 MG, UNK (DAYS 1, 2, 4, 5, 8, 9, 11, AND 12 OF EACH 21-DAY CYCLE FOR CYCLES 1-8)
     Route: 048
  2. PLACEBO [Suspect]
     Active Substance: UNSPECIFIED INGREDIENT
     Dosage: 1 OT, UNK (DOSAGE FORM: UNSPECIFIED)
     Route: 048
     Dates: start: 20170211, end: 20170309
  3. FUROSEMIDE. [Concomitant]
     Active Substance: FUROSEMIDE
     Indication: OEDEMA PERIPHERAL
     Dosage: 80 MG, QD (DOSAGE FORM: UNSPECIFIED)
     Route: 048
     Dates: start: 201702, end: 20170207
  4. FUROSEMIDE. [Concomitant]
     Active Substance: FUROSEMIDE
     Dosage: 40 MG, QD (DOSAGE FORM: UNSPECIFIED)
     Route: 048
     Dates: start: 20170208
  5. OXYBUTYNIN. [Concomitant]
     Active Substance: OXYBUTYNIN CHLORIDE
     Indication: INCONTINENCE
     Dosage: 5 MG, QD (DOSAGE FORM: UNSPECIFIED)
     Route: 048
     Dates: start: 20160602
  6. VELCADE [Suspect]
     Active Substance: BORTEZOMIB
     Indication: PLASMA CELL MYELOMA
     Dosage: DOSAGE FORM: LYOPHILIZED POWDER, DAYS 1, 4, 8 AND 11 OF EACH 21-DAY CYCLE FOR CYCLES 1-8
     Route: 058
  7. PLACEBO [Suspect]
     Active Substance: UNSPECIFIED INGREDIENT
     Dosage: 1 OT, UNK (DOSAGE FORM: UNSPECIFIED)
     Route: 048
     Dates: start: 20170331, end: 20170607
  8. LOPERAMIDE [Concomitant]
     Active Substance: LOPERAMIDE
     Indication: DIARRHOEA
     Dosage: 2 MG, UNK (DOSAGE FORM: UNSPECIFIED)
     Route: 048
     Dates: start: 20170312
  9. OSELTAMIVIR [Concomitant]
     Active Substance: OSELTAMIVIR
     Indication: INFLUENZA
     Dosage: 150 MG, QD (DOSAGE FORM: UNSPECIFIED)
     Route: 048
     Dates: start: 20170330
  10. POTASSIUM [Concomitant]
     Active Substance: POTASSIUM
     Indication: BLOOD POTASSIUM DECREASED
     Dosage: DOSAGE FORM: UNSPECIFIED
     Route: 048
  11. ACETAMINOPHEN W/CODEINE PHOSPHATE [Concomitant]
     Active Substance: ACETAMINOPHEN\CODEINE PHOSPHATE
     Indication: HEADACHE
     Dosage: 32 MG, QD (DOSAGE FORM: UNSPECIFIED)
     Route: 048
     Dates: start: 20170729
  12. DOXAZOCIN [Concomitant]
     Active Substance: DOXAZOSIN MESYLATE
     Indication: HYPERTENSION
     Dosage: 8 MG, QD (DOSAGE FORM: UNSPECIFIED)
     Route: 048
     Dates: start: 20080211
  13. VELCADE [Suspect]
     Active Substance: BORTEZOMIB
     Dosage: DOSAGE FORM: LYOPHILIZED POWDER, DAYS 1, 4, 8, AND 11 OF EACH 21 DAY CYCLE FOR CYCLES 1-8
     Route: 058
  14. VELCADE [Suspect]
     Active Substance: BORTEZOMIB
     Dosage: DOSAGE FORM: LYOPHILIZED POWDER, DAYS 1, 4, 8, AND 11 OF EACH 21 DAY CYCLE FOR CYCLE 9 AND BEYOND
     Route: 058
  15. VENETOCLAX. [Suspect]
     Active Substance: VENETOCLAX
     Dosage: 1 OT, QD (DOSAGE FORM: UNSPECIFIED)
     Route: 048
     Dates: start: 20170331, end: 20170607
  16. PLACEBO [Suspect]
     Active Substance: UNSPECIFIED INGREDIENT
     Indication: PLASMA CELL MYELOMA
     Dosage: 1 OT, UNK (DOSAGE FORM: UNSPECIFIED)
     Route: 048
     Dates: start: 20170106, end: 20170124
  17. DEXAMETHASONE. [Suspect]
     Active Substance: DEXAMETHASONE
     Dosage: 20 MG, UNK (DAYS 1, 2, 4, 5, 8, 9, 11, AND 12 OF EACH 21-DAY CYCLE FOR CYCLES 1-8)
     Route: 048
  18. DEXAMETHASONE. [Suspect]
     Active Substance: DEXAMETHASONE
     Dosage: 8 MG, UNK (DAYS 1, 2, 4, 5, 8, 9, 11, AND 12 OF EACH 21-DAY CYCLE FOR CYCLES 1-8)
     Route: 048
  19. VELCADE [Suspect]
     Active Substance: BORTEZOMIB
     Dosage: DOSAGE FORM: LYOPHILIZED POWDER, DAYS 1, 8, 15, AND 22 OF EACH 35-DAY CYCLE FOR CYCLES 9 AND BEYOND
     Route: 058
  20. AMLODIPINE [Concomitant]
     Active Substance: AMLODIPINE BESYLATE
     Indication: HYPERTENSION
     Dosage: 10 MG, QD (DOSAGE FORM: UNSPECIFIED)
     Route: 048
     Dates: start: 20161102
  21. COCODAMOL [Concomitant]
     Active Substance: ACETAMINOPHEN\CODEINE PHOSPHATE
     Indication: HEADACHE
     Dosage: 32 MG, QD (DOSAGE FORM: UNSPECIFIED)
     Route: 048
     Dates: start: 20170729
  22. LANSOPRAZOLE. [Concomitant]
     Active Substance: LANSOPRAZOLE
     Indication: HIATUS HERNIA
     Dosage: 60 MG, QD (DOSAGE FORM: UNSPECIFIED)
     Route: 048
     Dates: start: 201308
  23. DEXAMETHASONE. [Suspect]
     Active Substance: DEXAMETHASONE
     Indication: PLASMA CELL MYELOMA
     Dosage: 8 MG, UNK (DAYS 1, 2, 4, 5, 8, 9, 11, AND 12 OF EACH 21-DAY CYCLE FOR CYCLES 1-8)
     Route: 048
  24. LOPERAMIDE [Concomitant]
     Active Substance: LOPERAMIDE
     Dosage: 2 MG, UNK (DOSAGE FORM: UNSPECIFIED, AS REQUIRED)
     Route: 048
  25. ASPIRIN. [Concomitant]
     Active Substance: ASPIRIN
     Indication: PROPHYLAXIS
     Dosage: 75 MG, QD (DOSAGE FORM: UNSPECIFIED)
     Route: 048
     Dates: start: 20150529
  26. ASPIRIN. [Concomitant]
     Active Substance: ASPIRIN
     Indication: THROMBOSIS PROPHYLAXIS
  27. OSELTAMIVIR [Concomitant]
     Active Substance: OSELTAMIVIR
     Indication: INFLUENZA
  28. VELCADE [Suspect]
     Active Substance: BORTEZOMIB
     Dosage: DOSAGE FORM: LYOPHILIZED POWDER, DAYS 1, 4, 8 AND 11 OF EACH 21-DAY CYCLE FOR CYCLES 1-8
     Route: 058
  29. DOMPERIDONE [Concomitant]
     Active Substance: DOMPERIDONE
     Indication: NAUSEA
     Dosage: 10 MG, QD (DOSAGE FORM: UNSPECIFIED)
     Route: 048
     Dates: start: 20170224
  30. ERYTHROPOIETIN [Concomitant]
     Active Substance: ERYTHROPOIETIN
     Indication: ANAEMIA
     Dosage: 30000 IU, QW (DOSAGE FORM: UNSPECIFIED)
     Route: 058
     Dates: start: 20160901, end: 20161117
  31. PARACETAMOL [Concomitant]
     Active Substance: ACETAMINOPHEN
     Indication: HEADACHE
     Dosage: 500 MG, QD (DOSAGE FORM: UNSPECIFIED)
     Route: 048
     Dates: start: 20170729
  32. GABAPENTIN. [Concomitant]
     Active Substance: GABAPENTIN
     Indication: BURSITIS
     Dosage: 900 MG, QD (DOSAGE FORM: UNSPECIFIED)
     Route: 048
     Dates: start: 20161117
  33. PLACEBO [Suspect]
     Active Substance: UNSPECIFIED INGREDIENT
     Dosage: 1 OT, UNK (DOSAGE FORM: UNSPECIFIED)
     Route: 048
     Dates: start: 20170630, end: 20171026
  34. PAMIDRONATE [Concomitant]
     Active Substance: PAMIDRONATE DISODIUM
     Indication: BONE DISORDER
     Dosage: 30 MG, QD (DOSAGE FORM: UNSPECIFIED)
     Route: 042
     Dates: start: 20170728
  35. DEXAMETHASONE. [Suspect]
     Active Substance: DEXAMETHASONE
     Dosage: 12 MG, UNK (DAYS 1, 2, 4, 5, 8, 9, 11, AND 12 OF EACH 21-DAY CYCLE FOR CYCLES 1-8)
     Route: 048
  36. VELCADE [Suspect]
     Active Substance: BORTEZOMIB
     Dosage: DOSAGE FORM: LYOPHILIZED POWDER, DAYS 1, 4, 8 AND 11 OF EACH 21-DAY CYCLE FOR CYCLES 1-8
     Route: 058
  37. VENETOCLAX. [Suspect]
     Active Substance: VENETOCLAX
     Indication: PLASMA CELL MYELOMA
     Dosage: 1 OT, QD (DOSAGE FORM: UNSPECIFIED)
     Route: 048
     Dates: start: 20170106, end: 20170124
  38. VENETOCLAX. [Suspect]
     Active Substance: VENETOCLAX
     Dosage: 1 OT, QD (DOSAGE FORM: UNSPECIFIED)
     Route: 048
     Dates: start: 20170211, end: 20170309
  39. VENETOCLAX. [Suspect]
     Active Substance: VENETOCLAX
     Dosage: 1 OT, QD (DOSAGE FORM: UNSPECIFIED)
     Route: 048
     Dates: start: 20170630, end: 20171026
  40. DOMPERIDONE [Concomitant]
     Active Substance: DOMPERIDONE
     Indication: PROPHYLAXIS OF NAUSEA AND VOMITING
     Dosage: 30 MG, QD (DOSAGE FORM: UNSPECIFIED)
     Route: 048
     Dates: start: 20170109, end: 20170223
  41. ERYTHROPOIETIN [Concomitant]
     Active Substance: ERYTHROPOIETIN
     Dosage: 12000 IU, QW (DOSAGE FORM: UNSPECIFIED)
     Route: 058
     Dates: start: 20161118
  42. LEKOVIT CA [Concomitant]
     Active Substance: CALCIUM CARBONATE\CHOLECALCIFEROL
     Indication: PROPHYLAXIS
     Dosage: 1 DF, QD
     Route: 048
     Dates: start: 20101202

REACTIONS (1)
  - Infection [Not Recovered/Not Resolved]

NARRATIVE: CASE EVENT DATE: 20171026
